FAERS Safety Report 21576954 (Version 2)
Quarter: 2022Q4

REPORT INFORMATION
  Report Type: Spontaneous
  Country: IL (occurrence: None)
  Receive Date: 20221110
  Receipt Date: 20221114
  Transmission Date: 20230113
  Serious: Yes (Hospitalization, Other)
  Sender: FDA-Public Use
  Company Number: IL-ROCHE-3213775

PATIENT
  Age: 77 Year
  Sex: Male

DRUGS (18)
  1. MABTHERA [Suspect]
     Active Substance: RITUXIMAB
     Indication: Non-Hodgkin^s lymphoma
     Route: 065
  2. INTERFERON [Suspect]
     Active Substance: INTERFERON
     Indication: Non-Hodgkin^s lymphoma
     Route: 065
  3. RIBAVIRIN [Suspect]
     Active Substance: RIBAVIRIN
     Indication: Non-Hodgkin^s lymphoma
     Route: 065
  4. APATINIB [Suspect]
     Active Substance: APATINIB
     Indication: Non-Hodgkin^s lymphoma
     Route: 065
     Dates: start: 201707
  5. PACLITAXEL [Suspect]
     Active Substance: PACLITAXEL
     Indication: Non-Hodgkin^s lymphoma
     Route: 065
  6. CARBOPLATIN [Suspect]
     Active Substance: CARBOPLATIN
     Indication: Non-Hodgkin^s lymphoma
     Route: 065
  7. PEMBROLIZUMAB [Suspect]
     Active Substance: PEMBROLIZUMAB
     Indication: Non-Hodgkin^s lymphoma
     Route: 065
  8. OSIMERTINIB [Suspect]
     Active Substance: OSIMERTINIB
     Indication: Non-Hodgkin^s lymphoma
     Route: 065
  9. NORMALAX (ISRAEL) [Concomitant]
     Dosage: G
     Route: 048
  10. METAMIZOLE [Concomitant]
     Active Substance: METAMIZOLE
     Dosage: 500MG/1ML
     Route: 048
  11. PRED FORTE [Concomitant]
     Active Substance: PREDNISOLONE ACETATE
     Dosage: RIGHT EYE
  12. VIGAMOX [Concomitant]
     Active Substance: MOXIFLOXACIN HYDROCHLORIDE
     Dosage: 1 DROP, DRP RIGHT EYE
  13. KEYTRUDA [Concomitant]
     Active Substance: PEMBROLIZUMAB
  14. RECLAST [Concomitant]
     Active Substance: ZOLEDRONIC ACID
  15. NEXIUM [Concomitant]
     Active Substance: ESOMEPRAZOLE MAGNESIUM
     Dosage: 2 WEEKS
     Route: 048
  16. DEXAMETHASONE [Concomitant]
     Active Substance: DEXAMETHASONE
     Dosage: FOR 10 DAYS, DURING RADIATION DAYS
     Route: 048
  17. IMIPRAMINE [Concomitant]
     Active Substance: IMIPRAMINE
     Dosage: FOR 14 DAYS, 2PACKS
     Route: 048
  18. IMODIUM [Concomitant]
     Active Substance: LOPERAMIDE HYDROCHLORIDE
     Dosage: FOR 5 DAYS, 2 PACKS
     Route: 048

REACTIONS (5)
  - Metastases to lung [Unknown]
  - Diarrhoea haemorrhagic [Unknown]
  - Constipation [Unknown]
  - Gastritis [Unknown]
  - Asthenia [Unknown]

NARRATIVE: CASE EVENT DATE: 20170901
